FAERS Safety Report 20555551 (Version 4)
Quarter: 2022Q2

REPORT INFORMATION
  Report Type: Report from Study
  Country: US (occurrence: US)
  Receive Date: 20220304
  Receipt Date: 20220511
  Transmission Date: 20220721
  Serious: Yes (Hospitalization, Other)
  Sender: FDA-Public Use
  Company Number: US-PFIZER INC-202101752440

PATIENT
  Age: 59 Year
  Sex: Female

DRUGS (4)
  1. IBRANCE [Suspect]
     Active Substance: PALBOCICLIB
     Indication: Breast cancer metastatic
     Dosage: 125 MG, CYCLIC (ONCE DAILY, CYCLE IS 21 DAYS ON, 7 DAYS OFF OUT OF 28 DAYS)
     Route: 048
     Dates: start: 20211125, end: 20211207
  2. IBRANCE [Suspect]
     Active Substance: PALBOCICLIB
     Dosage: 100 MG, CYCLIC(21 DAYS AND OFF 7 DAYS) (21 OUT OF 28 DAYS)
     Route: 048
     Dates: start: 20220101, end: 202203
  3. FASLODEX [Concomitant]
     Active Substance: FULVESTRANT
     Dosage: UNK
  4. FEMARA [Concomitant]
     Active Substance: LETROZOLE
     Dosage: UNK

REACTIONS (20)
  - Vomiting [Recovered/Resolved]
  - Dehydration [Unknown]
  - Cerebrovascular accident [Unknown]
  - Renal impairment [Unknown]
  - Coronary artery occlusion [Unknown]
  - Pyrexia [Recovered/Resolved]
  - Chills [Recovered/Resolved]
  - Nausea [Recovered/Resolved]
  - Fatigue [Recovered/Resolved]
  - Somnolence [Recovering/Resolving]
  - Amnesia [Not Recovered/Not Resolved]
  - Bone pain [Recovered/Resolved]
  - Weight decreased [Unknown]
  - Malaise [Unknown]
  - Urinary tract infection [Unknown]
  - Blood potassium decreased [Unknown]
  - Heart rate decreased [Unknown]
  - Chest pain [Unknown]
  - Dyspnoea [Unknown]
  - Product dose omission issue [Unknown]

NARRATIVE: CASE EVENT DATE: 20210101
